FAERS Safety Report 7673066-3 (Version None)
Quarter: 2011Q3

REPORT INFORMATION
  Report Type: 
  Country: None (occurrence: None)
  Receive Date: 20110810
  Receipt Date: 20110802
  Transmission Date: 20111222
  Serious: Yes (Other)
  Sender: FDA-Public Use
  Company Number: FR-AMGEN-FRASP2011023788

PATIENT
  Age: 43 Year
  Sex: Male

DRUGS (4)
  1. HUMIRA [Suspect]
     Dosage: UNK
     Dates: start: 20090901, end: 20091101
  2. ARAVA [Suspect]
     Dosage: UNK
     Route: 048
     Dates: start: 20090305, end: 20100701
  3. ENBREL [Suspect]
     Indication: RHEUMATOID ARTHRITIS
     Dosage: 50 MG, WEEKLY
     Route: 058
     Dates: start: 20080901, end: 20090901
  4. ACTEMRA [Suspect]
     Indication: RHEUMATOID ARTHRITIS
     Dosage: UNK
     Route: 042
     Dates: start: 20091101

REACTIONS (2)
  - FOLLICULITIS [None]
  - DERMATITIS PSORIASIFORM [None]
